FAERS Safety Report 10676486 (Version 1)
Quarter: 2014Q4

REPORT INFORMATION
  Report Type: Spontaneous
  Country: AU (occurrence: AU)
  Receive Date: 20141226
  Receipt Date: 20141226
  Transmission Date: 20150529
  Serious: Yes (Death)
  Sender: FDA-Public Use
  Company Number: AU-CIPLA LTD.-2014AU02749

PATIENT

DRUGS (3)
  1. CARBOPLATIN. [Suspect]
     Active Substance: CARBOPLATIN
     Indication: LUNG NEOPLASM MALIGNANT
     Dosage: AUC OF 5 TO 6 MG/ML/MIN EVERY 3 WEEKS FOR MAXIMUM OF SIX CYCLES
  2. CISPLATIN. [Suspect]
     Active Substance: CISPLATIN
     Indication: LUNG NEOPLASM MALIGNANT
     Dosage: 75 MG/SQ/METER EVERY 3 WEEKS FOR MAXIMUM OF SIX CYCLES
  3. PEMETREXED [Suspect]
     Active Substance: PEMETREXED
     Indication: LUNG NEOPLASM MALIGNANT
     Dosage: 500MG/SQ/M OF BODY-SURFACE EVERY 3 WEEKS FOR MAXIMUM OF SIX CYCLES

REACTIONS (1)
  - Completed suicide [Fatal]
